FAERS Safety Report 8275244-1 (Version None)
Quarter: 2012Q2

REPORT INFORMATION
  Report Type: 
  Country: None (occurrence: None)
  Receive Date: 20120411
  Receipt Date: 20120330
  Transmission Date: 20120825
  Serious: Yes (Hospitalization, Other)
  Sender: FDA-Public Use
  Company Number: JP-ROCHE-1048296

PATIENT
  Age: 68 Year
  Sex: Female

DRUGS (6)
  1. RANIBIZUMAB [Suspect]
     Indication: AGE-RELATED MACULAR DEGENERATION
     Route: 050
     Dates: start: 20120104
  2. ACTOS [Concomitant]
  3. RANIBIZUMAB [Suspect]
     Route: 050
     Dates: start: 20120201
  4. RANIBIZUMAB [Suspect]
     Route: 050
     Dates: start: 20120301, end: 20120301
  5. BEZATOL [Concomitant]
  6. CLARITIN [Concomitant]

REACTIONS (2)
  - CATARACT TRAUMATIC [None]
  - WRONG TECHNIQUE IN DRUG USAGE PROCESS [None]
